FAERS Safety Report 5897622-8 (Version None)
Quarter: 2008Q3

REPORT INFORMATION
  Report Type: 
  Country: None (occurrence: None)
  Receive Date: 20080923
  Receipt Date: 20080909
  Transmission Date: 20090109
  Serious: Yes (Hospitalization)
  Sender: FDA-Public Use
  Company Number: AZADE200800314

PATIENT
  Age: 69 Year
  Sex: Male
  Weight: 75 kg

DRUGS (15)
  1. VIDAZA [Suspect]
     Indication: MYELODYSPLASTIC SYNDROME
     Dosage: (75 MG/M2), INTRAVENOUS
     Route: 042
     Dates: start: 20080822, end: 20080828
  2. SODIUM CHLORIDE 0.9% [Concomitant]
  3. ONDANSETRON HCL [Concomitant]
  4. LEVOFLOXACIN [Concomitant]
  5. AMLODIPINE [Concomitant]
  6. ENALAPRIL MALEATE [Concomitant]
  7. BISOPROLOL FUMARATE [Concomitant]
  8. POTASSIUM SALT (POTASSIUM) [Concomitant]
  9. FUROSEMIDE [Concomitant]
  10. XI PAMID (XI PAMIDE) [Concomitant]
  11. ALLOPURINOL [Concomitant]
  12. PANTOPRAZOLE SODIUM [Concomitant]
  13. VORICONAZOL (VORICONAZOLE) [Concomitant]
  14. ERYTHROCYTE CONCENTRATE (RED BLOOD CELLS) [Concomitant]
  15. PLATELET CONCENTRATES (PLATELETS, CONCENTRATED) [Concomitant]

REACTIONS (6)
  - GINGIVAL BLEEDING [None]
  - GLOSSODYNIA [None]
  - HYPERSENSITIVITY [None]
  - NEUTROPHIL COUNT DECREASED [None]
  - SALIVARY HYPERSECRETION [None]
  - WHITE BLOOD CELL COUNT DECREASED [None]
